FAERS Safety Report 9066274 (Version 1)
Quarter: 2013Q1

REPORT INFORMATION
  Report Type: Report from Study
  Country: US (occurrence: US)
  Receive Date: 20130131
  Receipt Date: 20130131
  Transmission Date: 20140127
  Serious: No
  Sender: FDA-Public Use
  Company Number: US-ABBOTT-12P-163-1007622-00

PATIENT
  Age: 62 Year
  Sex: Male

DRUGS (6)
  1. HUMIRA [Suspect]
     Indication: PSORIATIC ARTHROPATHY
     Dates: start: 201209
  2. SYNTHROID [Concomitant]
     Indication: BLOOD THYROID STIMULATING HORMONE DECREASED
     Route: 048
  3. HCTZ [Concomitant]
     Indication: BLOOD PRESSURE
     Route: 048
  4. HCTZ [Concomitant]
     Indication: SWELLING
  5. LOTREL [Concomitant]
     Indication: BLOOD PRESSURE
     Dosage: 10/20 MG
     Route: 048
  6. PREDNISONE [Concomitant]
     Indication: ARTHRITIS
     Route: 048

REACTIONS (1)
  - Cystitis [Recovered/Resolved]
